FAERS Safety Report 6183379-2 (Version None)
Quarter: 2009Q2

REPORT INFORMATION
  Report Type: 
  Country: None (occurrence: None)
  Receive Date: 20090507
  Receipt Date: 20090424
  Transmission Date: 20091009
  Serious: Yes (Death)
  Sender: FDA-Public Use
  Company Number: CA-GENENTECH-275602

PATIENT
  Sex: Male

DRUGS (3)
  1. AVASTIN [Suspect]
     Indication: GLIOBLASTOMA
     Dosage: 400 MG, Q2W
     Route: 042
     Dates: start: 20080521, end: 20090204
  2. AVASTIN [Suspect]
     Dosage: 400 MG, 1/WEEK
     Dates: start: 20081113
  3. VECTIBIX [Concomitant]
     Indication: DRUG USE FOR UNKNOWN INDICATION

REACTIONS (2)
  - DEATH [None]
  - PULMONARY THROMBOSIS [None]
